FAERS Safety Report 8432502-5 (Version None)
Quarter: 2012Q2

REPORT INFORMATION
  Report Type: 
  Country: None (occurrence: None)
  Receive Date: 20120613
  Receipt Date: 20120608
  Transmission Date: 20120825
  Serious: Yes (Other)
  Sender: FDA-Public Use
  Company Number: PHHY2012CA044243

PATIENT
  Sex: Female

DRUGS (1)
  1. ZOMETA [Suspect]
     Indication: BREAST CANCER
     Dosage: 4 MG, EVERY 4 WEEKS
     Route: 042
     Dates: start: 20120515

REACTIONS (8)
  - VOMITING [None]
  - MYALGIA [None]
  - FATIGUE [None]
  - HEADACHE [None]
  - APHAGIA [None]
  - PYREXIA [None]
  - WEIGHT DECREASED [None]
  - BONE PAIN [None]
